FAERS Safety Report 5358980-6 (Version None)
Quarter: 2007Q2

REPORT INFORMATION
  Report Type: 
  Country: None (occurrence: None)
  Receive Date: 20070615
  Receipt Date: 20070606
  Transmission Date: 20071010
  Serious: Yes (Other)
  Sender: FDA-Public Use
  Company Number: DE-ASTRAZENECA-2007PK01163

PATIENT
  Age: 30394 Day
  Sex: Male
  Weight: 80 kg

DRUGS (3)
  1. BELOC-ZOK [Suspect]
     Indication: TACHYARRHYTHMIA
     Route: 048
  2. METOPROLOL SUCCINATE [Interacting]
     Indication: ATRIAL FIBRILLATION
     Route: 048
  3. TRAMADOL HCL [Interacting]
     Indication: OSTEOARTHRITIS
     Dosage: 20 DROPS PER DAY
     Route: 048

REACTIONS (2)
  - BRADYCARDIA [None]
  - DRUG INTERACTION [None]
